FAERS Safety Report 16056369 (Version 1)
Quarter: 2019Q2

REPORT INFORMATION
  Report Type: Spontaneous
  Country: US (occurrence: US)
  Receive Date: 20190308
  Receipt Date: 20190308
  Transmission Date: 20190711
  Serious: Yes (Other)
  Sender: FDA-Public Use
  Company Number: None

PATIENT
  Age: 44 Year
  Sex: Male

DRUGS (8)
  1. ATORVASTATIN 20MG [Concomitant]
     Active Substance: ATORVASTATIN
     Dates: start: 20181010
  2. DULOXETINE 30MG [Concomitant]
     Active Substance: DULOXETINE
     Dates: start: 20170328
  3. CYCLOBENZAPRINE 10MG [Concomitant]
     Active Substance: CYCLOBENZAPRINE
     Dates: start: 20111216
  4. LOSARTAN 50MG [Concomitant]
     Active Substance: LOSARTAN
     Dates: start: 20160516
  5. TRAMADOL 50MG [Concomitant]
     Active Substance: TRAMADOL
     Dates: start: 20111216
  6. MELOXICAM 7.5MG [Concomitant]
     Active Substance: MELOXICAM
     Dates: start: 20140404
  7. GABAPENTIN 600MG [Concomitant]
     Active Substance: GABAPENTIN
     Dates: start: 20160622
  8. FORTEO [Suspect]
     Active Substance: TERIPARATIDE
     Indication: OSTEOPOROSIS
     Route: 058
     Dates: start: 20180806, end: 20190222

REACTIONS (4)
  - Heart rate increased [None]
  - Dysstasia [None]
  - Balance disorder [None]
  - Hyperhidrosis [None]

NARRATIVE: CASE EVENT DATE: 20190222
